FAERS Safety Report 7035947-3 (Version None)
Quarter: 2010Q4

REPORT INFORMATION
  Report Type: 
  Country: None (occurrence: None)
  Receive Date: 20101008
  Receipt Date: 20100930
  Transmission Date: 20110411
  Serious: Yes (Hospitalization)
  Sender: FDA-Public Use
  Company Number: CA-ABBOTT-10P-028-0671344-00

PATIENT
  Sex: Male
  Weight: 98.518 kg

DRUGS (27)
  1. KALETRA [Suspect]
     Indication: ANTIRETROVIRAL THERAPY
     Dosage: 200MG/50MG TWICE DAILY
     Route: 048
     Dates: start: 20080821
  2. LYRICA [Suspect]
     Indication: POST HERPETIC NEURALGIA
     Route: 048
     Dates: end: 20100901
  3. TRUVADA [Concomitant]
     Indication: HIV INFECTION
     Dosage: 200/300MG
     Route: 048
     Dates: start: 20080821
  4. CRESTOR [Concomitant]
     Indication: BLOOD CHOLESTEROL
     Dosage: Q AM
     Route: 048
  5. VASOTEC [Concomitant]
     Indication: HYPERTENSION
     Route: 048
  6. RAN-RABEPRAZOLE [Concomitant]
     Indication: GASTROOESOPHAGEAL REFLUX DISEASE
     Route: 048
  7. RHOVANE [Concomitant]
     Indication: PRODUCT USED FOR UNKNOWN INDICATION
     Dosage: AT BEDTIME
     Route: 048
  8. GABAPENTIN [Concomitant]
     Indication: POST HERPETIC NEURALGIA
     Dosage: 3 TABLETS AT BEDTIME
     Route: 048
  9. GABAPENTIN [Concomitant]
     Dosage: 4 TABLETS TID
     Route: 048
  10. RATIO-TAMSULOSIN [Concomitant]
     Indication: PRODUCT USED FOR UNKNOWN INDICATION
     Route: 048
  11. XYLOCAINE [Concomitant]
     Indication: PAIN IN EXTREMITY
     Dosage: GEL
     Route: 061
  12. NEURAGEN CREAM [Concomitant]
     Indication: PAIN IN EXTREMITY
     Route: 061
  13. VALTREX [Concomitant]
     Indication: PRODUCT USED FOR UNKNOWN INDICATION
     Dosage: AS REQUIRED
     Route: 048
  14. PROZAC [Concomitant]
     Indication: DEPRESSION
     Route: 048
  15. SENOKOT [Concomitant]
     Indication: CONSTIPATION PROPHYLAXIS
     Dosage: AT BEDTIME AS REQUIRED
     Route: 048
  16. PARIET [Concomitant]
     Indication: PRODUCT USED FOR UNKNOWN INDICATION
     Route: 048
  17. FLUCONAZOLE [Concomitant]
     Indication: PRODUCT USED FOR UNKNOWN INDICATION
     Dosage: PRN
     Route: 048
  18. FLOVENT [Concomitant]
     Indication: ASTHMA
     Route: 055
     Dates: start: 20100422
  19. SALBUTAMOL HFA [Concomitant]
     Indication: ASTHMA
     Dosage: AS REQUIRED
     Route: 055
     Dates: start: 20100422
  20. MYLAN-BACLOFEN [Concomitant]
     Indication: PAIN
     Dosage: AS REQUIRED
     Route: 048
     Dates: start: 20100607
  21. CELEBREX [Concomitant]
     Indication: PAIN
     Route: 048
     Dates: start: 20100607
  22. SOFLAX [Concomitant]
     Indication: CONSTIPATION PROPHYLAXIS
     Dosage: PRN
     Route: 048
     Dates: start: 20100422
  23. LACTULOSE [Concomitant]
     Indication: CONSTIPATION PROPHYLAXIS
     Route: 048
  24. COLACE [Concomitant]
     Indication: CONSTIPATION PROPHYLAXIS
     Route: 048
  25. PERCOCET [Concomitant]
     Indication: PAIN
     Dosage: AS REQUIRED
     Route: 048
  26. AVANDAMET [Concomitant]
     Indication: DIABETES MELLITUS
     Dosage: 4/1000MG BID
     Route: 048
     Dates: start: 20100708
  27. DOMPERIDONE [Concomitant]
     Indication: PRODUCT USED FOR UNKNOWN INDICATION
     Dates: start: 20100929

REACTIONS (18)
  - ASTHENIA [None]
  - BLOOD PRESSURE INCREASED [None]
  - CD4 LYMPHOCYTES DECREASED [None]
  - COUGH [None]
  - DECREASED APPETITE [None]
  - DIARRHOEA [None]
  - DIZZINESS [None]
  - DYSPNOEA [None]
  - EAR INFECTION [None]
  - FATIGUE [None]
  - HEADACHE [None]
  - HYPOPHAGIA [None]
  - IRRITABILITY [None]
  - NAUSEA [None]
  - PAIN [None]
  - PNEUMONIA [None]
  - RETCHING [None]
  - VERTIGO [None]
